FAERS Safety Report 4723157-1 (Version None)
Quarter: 2005Q3

REPORT INFORMATION
  Report Type: 
  Country: None (occurrence: None)
  Receive Date: 20050719
  Receipt Date: 20040726
  Transmission Date: 20060218
  Serious: Yes (Other)
  Sender: FDA-Public Use
  Company Number: 2004225949US

PATIENT
  Age: 63 Year
  Sex: Female
  Weight: 68 kg

DRUGS (4)
  1. CELEBREX [Suspect]
     Indication: INFLAMMATION
     Dosage: 200 MG, SINGLE, ORAL
     Route: 048
     Dates: start: 20040723, end: 20040723
  2. VALSARTAN [Concomitant]
  3. CELEXA [Concomitant]
  4. VITAMINS [Concomitant]

REACTIONS (4)
  - DYSPHAGIA [None]
  - ERYTHEMA [None]
  - FLUSHING [None]
  - SWELLING [None]
